FAERS Safety Report 6185295-9 (Version None)
Quarter: 2009Q2

REPORT INFORMATION
  Report Type: 
  Country: None (occurrence: None)
  Receive Date: 20090511
  Receipt Date: 20090501
  Transmission Date: 20091009
  Serious: Yes (Death, Other)
  Sender: FDA-Public Use
  Company Number: IT-ROCHE-630259

PATIENT
  Age: 45 Year
  Sex: Female

DRUGS (2)
  1. KETOROLAC TROMETHAMINE [Suspect]
     Indication: CARPAL TUNNEL SYNDROME
     Route: 030
  2. SALMETEROL [Concomitant]
     Indication: ASTHMA

REACTIONS (5)
  - BRONCHOSPASM [None]
  - CARDIAC ARREST [None]
  - ILL-DEFINED DISORDER [None]
  - LOSS OF CONSCIOUSNESS [None]
  - RESPIRATORY ARREST [None]
